FAERS Safety Report 4280607-5 (Version None)
Quarter: 2004Q1

REPORT INFORMATION
  Report Type: 
  Country: None (occurrence: None)
  Receive Date: 20040127
  Receipt Date: 20040114
  Transmission Date: 20041129
  Serious: Yes (Hospitalization, Other)
  Sender: FDA-Public Use
  Company Number: 2004002758

PATIENT
  Age: 67 Year
  Sex: Male
  Weight: 95.2554 kg

DRUGS (4)
  1. LIPITOR [Suspect]
     Indication: BLOOD CHOLESTEROL INCREASED
     Dosage: 10 MG DAILY ORAL
     Route: 048
     Dates: end: 20040113
  2. DIPHENHYDRAMINE HCL [Suspect]
     Indication: RASH
     Dosage: ORAL
     Route: 048
     Dates: start: 20040101
  3. WARFARIN SODIUM [Suspect]
     Indication: ILL-DEFINED DISORDER
     Dates: end: 20040101
  4. AMLODIPINE BESYLATE [Concomitant]

REACTIONS (3)
  - ALOPECIA [None]
  - RASH PRURITIC [None]
  - URTICARIA [None]
